FAERS Safety Report 24244805 (Version 3)
Quarter: 2025Q3

REPORT INFORMATION
  Report Type: Spontaneous
  Country: EU (occurrence: EU)
  Receive Date: 20240823
  Receipt Date: 20250821
  Transmission Date: 20251021
  Serious: Yes (Death, Life-Threatening, Hospitalization, Other)
  Sender: TAKEDA
  Company Number: EU-BAXTER-2024BAX021665

PATIENT
  Age: 57 Year
  Sex: Female
  Weight: 70 kg

DRUGS (79)
  1. ALBUMIN HUMAN [Suspect]
     Active Substance: ALBUMIN HUMAN
     Indication: Product used for unknown indication
  2. FENTANYL [Suspect]
     Active Substance: FENTANYL
     Indication: Product used for unknown indication
  3. VINCRISTINE [Suspect]
     Active Substance: VINCRISTINE
     Indication: Richter^s syndrome
     Dosage: 1.4 MILLIGRAM/SQ. METER, Q3WEEKS
     Dates: start: 20240524, end: 20240524
  4. VINCRISTINE [Suspect]
     Active Substance: VINCRISTINE
     Indication: Richter^s syndrome
     Dates: start: 20240524, end: 20240524
  5. RITUXIMAB [Suspect]
     Active Substance: RITUXIMAB
     Indication: Richter^s syndrome
     Dates: start: 20240430, end: 20240509
  6. RITUXIMAB [Suspect]
     Active Substance: RITUXIMAB
     Dates: start: 20240506, end: 20240506
  7. RITUXIMAB [Suspect]
     Active Substance: RITUXIMAB
     Dosage: 375 MG/SQ.METER, Q3WEEKS
     Dates: start: 20240524, end: 20240524
  8. PREDNISONE [Suspect]
     Active Substance: PREDNISONE
     Indication: Richter^s syndrome
     Dosage: UNK, UNK, Q3WEEKS
  9. PREDNISONE [Suspect]
     Active Substance: PREDNISONE
     Dosage: 100 MILLIGRAM, QD
  10. OXYGEN [Suspect]
     Active Substance: OXYGEN
     Indication: Product used for unknown indication
  11. CYCLOPHOSPHAMIDE [Suspect]
     Active Substance: CYCLOPHOSPHAMIDE
     Indication: Richter^s syndrome
     Dates: start: 20240502, end: 20240502
  12. CYCLOPHOSPHAMIDE [Suspect]
     Active Substance: CYCLOPHOSPHAMIDE
     Dosage: 750 MILLIGRAM/SQ. METER
     Dates: start: 20240524, end: 20240524
  13. DOXORUBICIN [Suspect]
     Active Substance: DOXORUBICIN
     Indication: Richter^s syndrome
     Dates: start: 20240502, end: 20240502
  14. DOXORUBICIN [Suspect]
     Active Substance: DOXORUBICIN
     Dates: start: 20240524, end: 20240524
  15. EPCORITAMAB [Suspect]
     Active Substance: EPCORITAMAB
     Indication: Richter^s syndrome
     Dosage: 0.16 MILLIGRAM, 1/WEEK
     Dates: start: 20240524, end: 20240524
  16. EPCORITAMAB [Suspect]
     Active Substance: EPCORITAMAB
     Dosage: 0.8 MILLIGRAM, 1/WEEK
     Dates: start: 20240531, end: 20240531
  17. TPN [Suspect]
     Active Substance: AMINO ACIDS\DEXTROSE\ELECTROLYTES NOS\SOYBEAN OIL
     Indication: Product used for unknown indication
  18. EPCORITAMAB [Suspect]
     Active Substance: EPCORITAMAB
     Indication: Richter^s syndrome
     Dosage: 0.16 MILLIGRAM, 1/WEEK
     Dates: start: 20240524, end: 20240524
  19. EPCORITAMAB [Suspect]
     Active Substance: EPCORITAMAB
     Dosage: 0.8 MILLIGRAM, 1/WEEK
     Dates: start: 20240531, end: 20240531
  20. EPCORITAMAB [Suspect]
     Active Substance: EPCORITAMAB
     Dosage: UNK UNK, 1/WEEK
     Dates: start: 20240531, end: 20240531
  21. DOXORUBICIN HYDROCHLORIDE [Suspect]
     Active Substance: DOXORUBICIN HYDROCHLORIDE
     Indication: Richter^s syndrome
  22. DOXORUBICIN HYDROCHLORIDE [Suspect]
     Active Substance: DOXORUBICIN HYDROCHLORIDE
     Dates: start: 20240502, end: 20240502
  23. DOXORUBICIN HYDROCHLORIDE [Suspect]
     Active Substance: DOXORUBICIN HYDROCHLORIDE
     Dosage: 50 MILLIGRAM/SQ. METER, Q3WEEKS
     Dates: start: 20240524, end: 20240524
  24. PIPERACILLIN SODIUM\SULBACTAM SODIUM [Concomitant]
     Active Substance: PIPERACILLIN SODIUM\SULBACTAM SODIUM
     Dates: start: 20240507, end: 20240519
  25. CANRENOATE POTASSIUM [Concomitant]
     Active Substance: CANRENOATE POTASSIUM
     Dates: start: 20240501, end: 20240503
  26. FILGRASTIM [Concomitant]
     Active Substance: FILGRASTIM
     Dates: start: 20240507, end: 20240512
  27. NEOSTIGMINE METHYLSULFATE [Concomitant]
     Active Substance: NEOSTIGMINE METHYLSULFATE
     Dates: start: 20240603, end: 20240604
  28. PALONOSETRON [Concomitant]
     Active Substance: PALONOSETRON
     Dates: start: 20240502, end: 20240502
  29. MAGNESIUM ASPARTATE\POTASSIUM ASPARTATE [Concomitant]
     Active Substance: MAGNESIUM ASPARTATE\POTASSIUM ASPARTATE
  30. RASBURICASE [Concomitant]
     Active Substance: RASBURICASE
  31. PIPERACILLIN AND TAZOBACTAM [Concomitant]
     Active Substance: PIPERACILLIN SODIUM\TAZOBACTAM SODIUM
  32. VORICONAZOLE [Concomitant]
     Active Substance: VORICONAZOLE
  33. DIHYDROCODEINE;PENTETRAZOL [Concomitant]
     Dates: start: 20240516, end: 20240529
  34. TRAMADOL [Concomitant]
     Active Substance: TRAMADOL
  35. DEXAMETHASONE [Concomitant]
     Active Substance: DEXAMETHASONE
  36. FUROSEMIDE [Concomitant]
     Active Substance: FUROSEMIDE
     Dates: start: 20240430, end: 20240503
  37. PANTOPRAZOLE [Concomitant]
     Active Substance: PANTOPRAZOLE
  38. ACETYLCYSTEINE [Concomitant]
     Active Substance: ACETYLCYSTEINE
  39. TOCILIZUMAB [Concomitant]
     Active Substance: TOCILIZUMAB
  40. CALCIUM CHLORIDE DIHYDRATE;POTASSIUM CHLORIDE;SODIUM ACETATE TRIHYDRAT [Concomitant]
  41. CEFTRIAXONE [Concomitant]
     Active Substance: CEFTRIAXONE
     Dates: start: 20240504, end: 20240507
  42. INSULIN HUMAN [Concomitant]
     Active Substance: INSULIN HUMAN
  43. METOCLOPRAMIDE [Concomitant]
     Active Substance: METOCLOPRAMIDE
     Dates: start: 20240530, end: 20240604
  44. ACETAMINOPHEN [Concomitant]
     Active Substance: ACETAMINOPHEN
     Indication: Premedication
  45. ACETAMINOPHEN [Concomitant]
     Active Substance: ACETAMINOPHEN
  46. ACETAMINOPHEN [Concomitant]
     Active Substance: ACETAMINOPHEN
     Dates: start: 20240524, end: 20240531
  47. ACETAMINOPHEN [Concomitant]
     Active Substance: ACETAMINOPHEN
  48. CHLORPHENIRAMINE MALEATE [Concomitant]
     Active Substance: CHLORPHENIRAMINE MALEATE
     Indication: Premedication
     Dates: start: 20240524, end: 20240531
  49. CHOLECALCIFEROL [Concomitant]
     Active Substance: CHOLECALCIFEROL
  50. ENOXAPARIN [Concomitant]
     Active Substance: ENOXAPARIN
     Dates: start: 20240430, end: 20240509
  51. CALCIUM CHLORIDE [Concomitant]
     Active Substance: CALCIUM CHLORIDE
  52. DEXAMETHASONE PHOSPHATE [Concomitant]
     Active Substance: DEXAMETHASONE PHOSPHATE
     Dates: start: 20240501, end: 20240506
  53. DEXAMETHASONE PHOSPHATE [Concomitant]
     Active Substance: DEXAMETHASONE PHOSPHATE
     Dates: start: 20240524, end: 20240604
  54. ACYCLOVIR [Concomitant]
     Active Substance: ACYCLOVIR
  55. ACETAMINOPHEN [Concomitant]
     Active Substance: ACETAMINOPHEN
  56. BACTRIM [Concomitant]
     Active Substance: SULFAMETHOXAZOLE\TRIMETHOPRIM
     Dates: start: 20240530, end: 20240603
  57. LEVOFLOXACIN [Concomitant]
     Active Substance: LEVOFLOXACIN
  58. LEVOFLOXACIN [Concomitant]
     Active Substance: LEVOFLOXACIN
  59. LEVOFLOXACIN [Concomitant]
     Active Substance: LEVOFLOXACIN
  60. LEVOFLOXACIN [Concomitant]
     Active Substance: LEVOFLOXACIN
     Dates: start: 20240511, end: 20240519
  61. AMPHOTERICIN B [Concomitant]
     Active Substance: AMPHOTERICIN B
  62. CALCIUM GLUCONATE [Concomitant]
     Active Substance: CALCIUM GLUCONATE
  63. QUETIAPINE [Concomitant]
     Active Substance: QUETIAPINE
  64. MIDAZOLAM [Concomitant]
     Active Substance: MIDAZOLAM
  65. ALPRAZOLAM [Concomitant]
     Active Substance: ALPRAZOLAM
  66. ZOLEDRONIC ACID [Concomitant]
     Active Substance: ZOLEDRONIC ACID
  67. SODIUM SUCCINATE [Concomitant]
     Active Substance: SODIUM SUCCINATE HEXAHYDRATE
     Dates: start: 20240531, end: 20240601
  68. HYDROCORTISONE [Concomitant]
     Active Substance: HYDROCORTISONE
     Dates: start: 20240506, end: 20240506
  69. MEROPENEM [Concomitant]
     Active Substance: MEROPENEM
  70. VANCOMYCIN [Concomitant]
     Active Substance: VANCOMYCIN
     Dates: start: 20240509, end: 20240518
  71. CASPOFUNGIN [Concomitant]
     Active Substance: CASPOFUNGIN
  72. LEVOSULPIRIDE [Concomitant]
     Active Substance: LEVOSULPIRIDE
  73. DELORAZEPAM [Concomitant]
     Active Substance: DELORAZEPAM
  74. LINEZOLID [Concomitant]
     Active Substance: LINEZOLID
  75. CITALOPRAM [Concomitant]
     Active Substance: CITALOPRAM
  76. BECLOMETHASONE DIPROPIONATE [Concomitant]
     Active Substance: BECLOMETHASONE DIPROPIONATE
  77. AMINO ACIDS\DEXTROSE\ELECTROLYTES NOS\SOYBEAN OIL [Concomitant]
     Active Substance: AMINO ACIDS\DEXTROSE\ELECTROLYTES NOS\SOYBEAN OIL
  78. RITUXIMAB [Concomitant]
     Active Substance: RITUXIMAB
     Dates: start: 20240506, end: 20240506
  79. Rosomidnar liposomal [Concomitant]

REACTIONS (13)
  - Necrotising colitis [Fatal]
  - Urine abnormality [Fatal]
  - Chromaturia [Fatal]
  - Hypotension [Fatal]
  - Pyrexia [Fatal]
  - Flatulence [Fatal]
  - Blood test abnormal [Fatal]
  - Gastrointestinal dilation procedure [Fatal]
  - Abdominal distension [Fatal]
  - Haemoperitoneum [Fatal]
  - Respiratory failure [Not Recovered/Not Resolved]
  - Immunosuppression [Unknown]
  - General physical health deterioration [Unknown]

NARRATIVE: CASE EVENT DATE: 20240530
